FAERS Safety Report 25226902 (Version 1)
Quarter: 2025Q2

REPORT INFORMATION
  Report Type: Spontaneous
  Country: CA (occurrence: CA)
  Receive Date: 20250422
  Receipt Date: 20250422
  Transmission Date: 20250716
  Serious: Yes (Hospitalization)
  Sender: MYLAN
  Company Number: CA-MYLANLABS-2025M1033867

PATIENT
  Age: 63 Year
  Sex: Female
  Weight: 68 kg

DRUGS (44)
  1. DIVALPROEX SODIUM [Suspect]
     Active Substance: DIVALPROEX SODIUM
     Indication: Bipolar disorder
     Dosage: 750 MILLIGRAM, QD (1 EVERY 1 DAY)
  2. DIVALPROEX SODIUM [Suspect]
     Active Substance: DIVALPROEX SODIUM
     Dosage: 750 MILLIGRAM, QD (1 EVERY 1 DAY)
     Route: 048
  3. DIVALPROEX SODIUM [Suspect]
     Active Substance: DIVALPROEX SODIUM
     Dosage: 750 MILLIGRAM, QD (1 EVERY 1 DAY)
     Route: 048
  4. DIVALPROEX SODIUM [Suspect]
     Active Substance: DIVALPROEX SODIUM
     Dosage: 750 MILLIGRAM, QD (1 EVERY 1 DAY)
  5. ABILIFY [Concomitant]
     Active Substance: ARIPIPRAZOLE
  6. ABILIFY [Concomitant]
     Active Substance: ARIPIPRAZOLE
     Route: 065
  7. ABILIFY [Concomitant]
     Active Substance: ARIPIPRAZOLE
     Route: 065
  8. ABILIFY [Concomitant]
     Active Substance: ARIPIPRAZOLE
  9. AMLODIPINE [Concomitant]
     Active Substance: AMLODIPINE BESYLATE
  10. AMLODIPINE [Concomitant]
     Active Substance: AMLODIPINE BESYLATE
     Route: 065
  11. AMLODIPINE [Concomitant]
     Active Substance: AMLODIPINE BESYLATE
     Route: 065
  12. AMLODIPINE [Concomitant]
     Active Substance: AMLODIPINE BESYLATE
  13. ATORVASTATIN CALCIUM [Concomitant]
     Active Substance: ATORVASTATIN CALCIUM
  14. ATORVASTATIN CALCIUM [Concomitant]
     Active Substance: ATORVASTATIN CALCIUM
     Route: 065
  15. ATORVASTATIN CALCIUM [Concomitant]
     Active Substance: ATORVASTATIN CALCIUM
     Route: 065
  16. ATORVASTATIN CALCIUM [Concomitant]
     Active Substance: ATORVASTATIN CALCIUM
  17. BUPROPION [Concomitant]
     Active Substance: BUPROPION
  18. BUPROPION [Concomitant]
     Active Substance: BUPROPION
     Route: 065
  19. BUPROPION [Concomitant]
     Active Substance: BUPROPION
     Route: 065
  20. BUPROPION [Concomitant]
     Active Substance: BUPROPION
  21. DOMPERIDONE [Concomitant]
     Active Substance: DOMPERIDONE
  22. DOMPERIDONE [Concomitant]
     Active Substance: DOMPERIDONE
     Route: 065
  23. DOMPERIDONE [Concomitant]
     Active Substance: DOMPERIDONE
     Route: 065
  24. DOMPERIDONE [Concomitant]
     Active Substance: DOMPERIDONE
  25. PANTOPRAZOLE [Concomitant]
     Active Substance: PANTOPRAZOLE
  26. PANTOPRAZOLE [Concomitant]
     Active Substance: PANTOPRAZOLE
     Route: 065
  27. PANTOPRAZOLE [Concomitant]
     Active Substance: PANTOPRAZOLE
     Route: 065
  28. PANTOPRAZOLE [Concomitant]
     Active Substance: PANTOPRAZOLE
  29. PERINDOPRIL [Concomitant]
     Active Substance: PERINDOPRIL
  30. PERINDOPRIL [Concomitant]
     Active Substance: PERINDOPRIL
     Route: 065
  31. PERINDOPRIL [Concomitant]
     Active Substance: PERINDOPRIL
     Route: 065
  32. PERINDOPRIL [Concomitant]
     Active Substance: PERINDOPRIL
  33. SYNTHROID [Concomitant]
     Active Substance: LEVOTHYROXINE SODIUM
  34. SYNTHROID [Concomitant]
     Active Substance: LEVOTHYROXINE SODIUM
     Route: 065
  35. SYNTHROID [Concomitant]
     Active Substance: LEVOTHYROXINE SODIUM
     Route: 065
  36. SYNTHROID [Concomitant]
     Active Substance: LEVOTHYROXINE SODIUM
  37. TRESIBA [Concomitant]
     Active Substance: INSULIN DEGLUDEC
  38. TRESIBA [Concomitant]
     Active Substance: INSULIN DEGLUDEC
     Route: 065
  39. TRESIBA [Concomitant]
     Active Substance: INSULIN DEGLUDEC
     Route: 065
  40. TRESIBA [Concomitant]
     Active Substance: INSULIN DEGLUDEC
  41. INSULIN ASPART [Concomitant]
     Active Substance: INSULIN ASPART
  42. INSULIN ASPART [Concomitant]
     Active Substance: INSULIN ASPART
     Route: 065
  43. INSULIN ASPART [Concomitant]
     Active Substance: INSULIN ASPART
     Route: 065
  44. INSULIN ASPART [Concomitant]
     Active Substance: INSULIN ASPART

REACTIONS (10)
  - White blood cells urine positive [Recovered/Resolved]
  - Fall [Recovered/Resolved]
  - Altered state of consciousness [Recovered/Resolved]
  - Hyperglycaemia [Recovered/Resolved]
  - Malnutrition [Recovered/Resolved]
  - Toxicity to various agents [Recovered/Resolved]
  - Diabetes mellitus inadequate control [Recovered/Resolved]
  - Urine abnormality [Recovered/Resolved]
  - Confusional state [Recovered/Resolved]
  - Tremor [Recovered/Resolved]
